FAERS Safety Report 7785037-7 (Version None)
Quarter: 2011Q3

REPORT INFORMATION
  Report Type: 
  Country: None (occurrence: None)
  Receive Date: 20110929
  Receipt Date: 20110920
  Transmission Date: 20111222
  Serious: Yes (Hospitalization)
  Sender: FDA-Public Use
  Company Number: AU-BIOGENIDEC-2010BI022036

PATIENT
  Age: 51 Year
  Sex: Male

DRUGS (5)
  1. TYSABRI [Suspect]
     Indication: NEUROMYELITIS OPTICA
     Route: 042
     Dates: start: 20080101, end: 20100601
  2. CANDESARTAN CILEXETIL [Concomitant]
  3. SLOW-K [Concomitant]
  4. CALCIUM CARBONATE [Concomitant]
  5. OSTELIN [Concomitant]

REACTIONS (1)
  - NEUROMYELITIS OPTICA [None]
